FAERS Safety Report 20953918 (Version 1)
Quarter: 2022Q2

REPORT INFORMATION
  Report Type: Other
  Country: US (occurrence: US)
  Receive Date: 20220614
  Receipt Date: 20220614
  Transmission Date: 20220721
  Serious: Yes (Hospitalization)
  Sender: FDA-Public Use
  Company Number: US-DEXPHARM-20220887

PATIENT
  Age: 97 Year
  Sex: Female

DRUGS (5)
  1. DONEPEZIL [Suspect]
     Active Substance: DONEPEZIL
     Indication: Dementia
     Dosage: DOSAGE AND ROUTE NOT STATED
  2. PRAVASTATIN [Concomitant]
     Active Substance: PRAVASTATIN
  3. ASPIRIN [Concomitant]
     Active Substance: ASPIRIN
  4. LABETALOL [Concomitant]
     Active Substance: LABETALOL\LABETALOL HYDROCHLORIDE
  5. OXYBUTYNIN [Concomitant]
     Active Substance: OXYBUTYNIN

REACTIONS (4)
  - Syncope [Recovering/Resolving]
  - Sinus bradycardia [Recovering/Resolving]
  - Extrasystoles [Recovering/Resolving]
  - Miosis [Unknown]
